FAERS Safety Report 11234731 (Version 3)
Quarter: 2015Q3

REPORT INFORMATION
  Report Type: Report from Study
  Country: BR (occurrence: BR)
  Receive Date: 20150702
  Receipt Date: 20150825
  Transmission Date: 20151125
  Serious: Yes (Death, Other)
  Sender: FDA-Public Use
  Company Number: PHHY2015BR079214

PATIENT
  Sex: Male
  Weight: 43 kg

DRUGS (1)
  1. EXJADE [Suspect]
     Active Substance: DEFERASIROX
     Indication: HAEMOLYTIC ANAEMIA
     Dosage: 2 DF (25MG/KG), QD
     Route: 048

REACTIONS (3)
  - Renal failure [Fatal]
  - Sepsis [Unknown]
  - Hepatic failure [Fatal]
